FAERS Safety Report 10424739 (Version 1)
Quarter: 2014Q2

REPORT INFORMATION
  Report Type: Spontaneous
  Country: US (occurrence: None)
  Receive Date: 20140430
  Receipt Date: 20140430
  Transmission Date: 20141212
  Serious: No
  Sender: FDA-Public Use
  Company Number: AP356-00666-SPO-US

PATIENT
  Sex: Female
  Weight: 84.8 kg

DRUGS (2)
  1. BELVIQ [Suspect]
     Indication: WEIGHT DECREASED
     Route: 048
     Dates: start: 201312
  2. GLICLAZIDE [Concomitant]

REACTIONS (1)
  - Cough [None]
